FAERS Safety Report 10869197 (Version 1)
Quarter: 2015Q1

REPORT INFORMATION
  Report Type: Spontaneous
  Country: US (occurrence: US)
  Receive Date: 20150225
  Receipt Date: 20150225
  Transmission Date: 20150721
  Serious: No
  Sender: FDA-Public Use
  Company Number: US-009507513-1502USA011102

PATIENT
  Sex: Male

DRUGS (1)
  1. A AND D [Suspect]
     Active Substance: DIMETHICONE\PETROLATUM\ZINC OXIDE
     Indication: DERMATITIS DIAPER
     Dosage: UNK, UNKNOWN
     Route: 061

REACTIONS (2)
  - Condition aggravated [Unknown]
  - Drug ineffective [Unknown]
